FAERS Safety Report 8531337-2 (Version None)
Quarter: 2012Q3

REPORT INFORMATION
  Report Type: 
  Country: None (occurrence: None)
  Receive Date: 20120723
  Receipt Date: 20120713
  Transmission Date: 20120928
  Serious: No
  Sender: FDA-Public Use
  Company Number: US-BAYER-2012-053250

PATIENT
  Age: 36 Year
  Sex: Female
  Weight: 73.016 kg

DRUGS (3)
  1. MIRENA [Suspect]
     Dosage: 20 ?G/D, UNK
     Route: 015
     Dates: start: 20120516
  2. MIRENA [Suspect]
     Dosage: 20 ?G/D, CONT
     Route: 015
     Dates: start: 20120516, end: 20120516
  3. CYTOTEC [Concomitant]

REACTIONS (2)
  - DEVICE DIFFICULT TO USE [None]
  - DISCOMFORT [None]
